FAERS Safety Report 25881981 (Version 2)
Quarter: 2025Q4

REPORT INFORMATION
  Report Type: Report from Study
  Country: US (occurrence: US)
  Receive Date: 20251005
  Receipt Date: 20251104
  Transmission Date: 20260118
  Serious: Yes (Other)
  Sender: ABBVIE
  Company Number: US-ABBVIE-6485310

PATIENT
  Age: 54 Year
  Sex: Female

DRUGS (1)
  1. SKYRIZI [Suspect]
     Active Substance: RISANKIZUMAB-RZAA
     Indication: Psoriasis
     Route: 058
     Dates: start: 20250426

REACTIONS (11)
  - Foot deformity [Recovering/Resolving]
  - Pain in extremity [Not Recovered/Not Resolved]
  - Foot deformity [Unknown]
  - Suture rupture [Unknown]
  - Post procedural infection [Recovering/Resolving]
  - Muscle disorder [Unknown]
  - Skin warm [Unknown]
  - Scab [Not Recovered/Not Resolved]
  - Skin weeping [Unknown]
  - Pain of skin [Unknown]
  - Bone graft [Recovering/Resolving]

NARRATIVE: CASE EVENT DATE: 20250101
